FAERS Safety Report 4687909-9 (Version None)
Quarter: 2005Q2

REPORT INFORMATION
  Report Type: 
  Country: None (occurrence: None)
  Receive Date: 20050610
  Receipt Date: 20050531
  Transmission Date: 20051028
  Serious: Yes (Other)
  Sender: FDA-Public Use
  Company Number: CA-GLAXOSMITHKLINE-A0561849A

PATIENT
  Age: 35 Year
  Sex: Female

DRUGS (5)
  1. PAXIL [Suspect]
     Indication: DRUG USE FOR UNKNOWN INDICATION
     Dosage: 20MG PER DAY
     Route: 048
  2. ATIVAN [Suspect]
     Indication: DRUG USE FOR UNKNOWN INDICATION
     Dosage: 3MG PER DAY
     Route: 048
  3. BIAXIN [Concomitant]
  4. FLAGYL [Concomitant]
  5. NEXIUM [Concomitant]

REACTIONS (2)
  - INTENTIONAL MISUSE [None]
  - SUICIDE ATTEMPT [None]
